FAERS Safety Report 9665323 (Version 1)
Quarter: 2013Q4

REPORT INFORMATION
  Report Type: Spontaneous
  Country: US (occurrence: US)
  Receive Date: 20131101
  Receipt Date: 20131101
  Transmission Date: 20140711
  Serious: No
  Sender: FDA-Public Use
  Company Number: US-ASTRAZENECA-2013SE77374

PATIENT
  Age: 47 Year
  Sex: Female

DRUGS (10)
  1. CRESTOR [Suspect]
     Route: 048
     Dates: start: 201108
  2. CRESTOR [Suspect]
     Route: 048
     Dates: start: 20110810
  3. SIMVASTATIN [Concomitant]
  4. CORTICOSTEROIDS [Concomitant]
  5. LISINOPRIL [Concomitant]
  6. PREDNISONE [Concomitant]
  7. CELEXA [Concomitant]
     Route: 048
  8. NEXIUM [Concomitant]
     Route: 048
  9. SINGULAIR [Concomitant]
     Route: 048
  10. VITAMIN C [Concomitant]
     Route: 048

REACTIONS (5)
  - Burning sensation [Recovering/Resolving]
  - Skin hyperpigmentation [Unknown]
  - Rash [Unknown]
  - Myositis [Unknown]
  - Insomnia [Unknown]
